FAERS Safety Report 21692038 (Version 1)
Quarter: 2022Q4

REPORT INFORMATION
  Report Type: Other
  Country: AU (occurrence: AU)
  Receive Date: 20221207
  Receipt Date: 20221207
  Transmission Date: 20230113
  Serious: Yes (Other)
  Sender: FDA-Public Use
  Company Number: AU-CELLTRION INC.-2022AU020440

PATIENT

DRUGS (1)
  1. TRASTUZUMAB [Suspect]
     Active Substance: TRASTUZUMAB
     Indication: Product used for unknown indication

REACTIONS (5)
  - Myopericarditis [Unknown]
  - Atrial fibrillation [Unknown]
  - Pericardial effusion [Unknown]
  - Pericarditis [Unknown]
  - Toxicity to various agents [Unknown]
